FAERS Safety Report 11142200 (Version 1)
Quarter: 2015Q2

REPORT INFORMATION
  Report Type: Spontaneous
  Country: US (occurrence: US)
  Receive Date: 20150527
  Receipt Date: 20150527
  Transmission Date: 20150821
  Serious: Yes (Other)
  Sender: FDA-Public Use
  Company Number: US-APOTEX-2015AP006291

PATIENT
  Sex: Female
  Weight: 3.41 kg

DRUGS (17)
  1. AMIODARONE HYDROCHLORIDE. [Suspect]
     Active Substance: AMIODARONE HYDROCHLORIDE
     Indication: TACHYCARDIA FOETAL
     Dosage: 600 MG EVERY 6 HOURS FOR 4 DOSES
     Route: 064
  2. ZOLOFT [Suspect]
     Active Substance: SERTRALINE HYDROCHLORIDE
     Indication: DEPRESSION
     Route: 064
  3. DIGOXIN. [Suspect]
     Active Substance: DIGOXIN
     Dosage: 500 MCG EVERY 6 HOURS FOR 4 DOSES
     Route: 064
  4. GLYBURIDE. [Suspect]
     Active Substance: GLYBURIDE
     Indication: DIABETES MELLITUS
  5. AMIODARONE HYDROCHLORIDE. [Suspect]
     Active Substance: AMIODARONE HYDROCHLORIDE
     Dosage: 8 MG, BID
     Route: 048
  6. AMIODARONE HCL INJECTION [Suspect]
     Active Substance: AMIODARONE HYDROCHLORIDE
     Indication: TACHYCARDIA FOETAL
     Dosage: 5 MG THREE TIMES FROM HOSPITAL DAYS 14 TO 21 AND ON DAY 25
     Route: 042
  7. DIGOXIN. [Suspect]
     Active Substance: DIGOXIN
     Dosage: 250 MCG EVERY 6 HOURS
     Route: 064
  8. AMIODARONE HYDROCHLORIDE. [Suspect]
     Active Substance: AMIODARONE HYDROCHLORIDE
     Dosage: 300 MG EVERY 6 HOURS FOR 4 DOSES
     Route: 064
  9. FLECAINIDE [Suspect]
     Active Substance: FLECAINIDE
     Indication: TACHYCARDIA FOETAL
     Dosage: 150 MG, BID
     Route: 064
  10. DIGOXIN. [Suspect]
     Active Substance: DIGOXIN
     Indication: TACHYCARDIA FOETAL
     Dosage: LOADING DOSE: 500MCG
     Route: 064
  11. AMIODARONE HCL INJECTION [Suspect]
     Active Substance: AMIODARONE HYDROCHLORIDE
     Dosage: UNK
  12. SEROQUEL [Suspect]
     Active Substance: QUETIAPINE FUMARATE
     Indication: DEPRESSION
     Route: 065
  13. INSULIN [Suspect]
     Active Substance: INSULIN NOS
     Indication: GESTATIONAL DIABETES
     Route: 064
  14. GLIBENCLAMIDE [Concomitant]
     Active Substance: GLYBURIDE
     Indication: GESTATIONAL DIABETES
     Route: 064
  15. FLECAINIDE [Suspect]
     Active Substance: FLECAINIDE
     Dosage: 5 MG, TID
     Route: 048
  16. DIGOXIN. [Suspect]
     Active Substance: DIGOXIN
     Dosage: 500 MCG EVERY 12 HOURS
     Route: 064
  17. AMIODARONE HYDROCHLORIDE. [Suspect]
     Active Substance: AMIODARONE HYDROCHLORIDE
     Dosage: 300 MG EVERY 12 HOURS
     Route: 064

REACTIONS (4)
  - Foetal exposure during pregnancy [Recovered/Resolved]
  - Drug ineffective [Unknown]
  - Wolff-Parkinson-White syndrome [Unknown]
  - Hypothyroidism [Recovered/Resolved]
